FAERS Safety Report 16955494 (Version 2)
Quarter: 2019Q4

REPORT INFORMATION
  Report Type: Report from Study
  Country: None (occurrence: PL)
  Receive Date: 20191024
  Receipt Date: 20191108
  Transmission Date: 20200122
  Serious: Yes (Death)
  Sender: FDA-Public Use
  Company Number: PL-ABBVIE-19K-129-2976056-00

PATIENT
  Age: 74 Year
  Sex: Female

DRUGS (1)
  1. DUODOPA [Suspect]
     Active Substance: CARBIDOPA\LEVODOPA
     Indication: PARKINSON^S DISEASE
     Route: 050
     Dates: start: 20190623

REACTIONS (2)
  - Death [Fatal]
  - Device issue [Unknown]

NARRATIVE: CASE EVENT DATE: 2019
